FAERS Safety Report 24335718 (Version 1)
Quarter: 2024Q3

REPORT INFORMATION
  Report Type: Spontaneous
  Country: CN (occurrence: CN)
  Receive Date: 20240919
  Receipt Date: 20240919
  Transmission Date: 20241017
  Serious: Yes (Hospitalization, Other)
  Sender: NOVO NORDISK
  Company Number: CN-NOVOPROD-1281579

PATIENT
  Age: 95 Year
  Sex: Female
  Weight: 59 kg

DRUGS (3)
  1. XULTOPHY 100/3.6 [Suspect]
     Active Substance: INSULIN DEGLUDEC\LIRAGLUTIDE
     Dosage: 8 IU, QD BEFORE BREAKFAST WITHOUT EATING ANYTHING
     Route: 058
  2. XULTOPHY 100/3.6 [Suspect]
     Active Substance: INSULIN DEGLUDEC\LIRAGLUTIDE
     Indication: Type 2 diabetes mellitus
     Dosage: 12 IU, QD
     Route: 058
  3. METFORMIN [Concomitant]
     Active Substance: METFORMIN HYDROCHLORIDE
     Indication: Type 2 diabetes mellitus
     Dosage: 1 DF QD (1 TABLET AT BREAKFAST)
     Route: 048

REACTIONS (2)
  - Cerebral infarction [Unknown]
  - Diabetes mellitus inadequate control [Recovered/Resolved]
